FAERS Safety Report 9055323 (Version 3)
Quarter: 2013Q1

REPORT INFORMATION
  Report Type: Report from Study
  Country: US (occurrence: US)
  Receive Date: 20130206
  Receipt Date: 20130329
  Transmission Date: 20140127
  Serious: Yes (Hospitalization)
  Sender: FDA-Public Use
  Company Number: US-ROCHE-1188235

PATIENT
  Age: 55 None
  Sex: Female

DRUGS (8)
  1. PEG-INTERFERON ALFA 2A [Suspect]
     Indication: CHRONIC HEPATITIS C
     Route: 058
     Dates: start: 20120924, end: 20121231
  2. RIBAVIRIN [Suspect]
     Indication: CHRONIC HEPATITIS C
     Route: 048
     Dates: start: 20120924, end: 20130102
  3. DACLATASVIR [Suspect]
     Indication: CHRONIC HEPATITIS C
     Route: 048
     Dates: start: 20120924, end: 20130102
  4. HYDROCHLOROTHIAZIDE [Concomitant]
     Route: 065
     Dates: start: 1998
  5. LISINOPRIL [Concomitant]
     Route: 065
     Dates: start: 1997
  6. METOPROLOL SUCCINATE [Concomitant]
     Route: 065
     Dates: start: 1999
  7. ACETAMINOPHEN [Concomitant]
     Route: 065
     Dates: start: 20121202, end: 20130101
  8. GUAIFENESIN WITH CODEINE [Concomitant]
     Route: 065
     Dates: start: 20121204, end: 20130103

REACTIONS (1)
  - Cholelithiasis [Recovered/Resolved]
